FAERS Safety Report 9174323 (Version 2)
Quarter: 2013Q1

REPORT INFORMATION
  Report Type: Spontaneous
  Country: US (occurrence: US)
  Receive Date: 20130320
  Receipt Date: 20130326
  Transmission Date: 20140127
  Serious: No
  Sender: FDA-Public Use
  Company Number: PHEH2013US003717

PATIENT
  Sex: Male

DRUGS (14)
  1. TASIGNA [Suspect]
     Indication: LEUKAEMIA
     Dosage: 200 MG, BID
     Route: 048
     Dates: start: 20130106, end: 20130113
  2. TASIGNA [Suspect]
     Dosage: 200 MG, QD
     Route: 048
     Dates: start: 20130114
  3. CARDIOVASCULAR DRUGS [Concomitant]
     Indication: HEART TRANSPLANT
  4. NOVOLOG [Concomitant]
  5. VERAPAMIL [Concomitant]
  6. GEMFIBROZIL [Concomitant]
  7. CALCIUM [Concomitant]
  8. MYCOPHENOLATE [Concomitant]
  9. FLOMAX ^BOEHRINGER INGELHEIM^ [Concomitant]
  10. ALLOPURINOL [Concomitant]
  11. PREDNISONE [Concomitant]
  12. PRAVASTATIN [Concomitant]
  13. GENGRAF [Concomitant]
  14. LOSARTAN [Concomitant]

REACTIONS (6)
  - Diarrhoea [Unknown]
  - Abdominal pain upper [Unknown]
  - Malaise [Unknown]
  - Abdominal discomfort [Unknown]
  - Vomiting [Unknown]
  - Heart rate increased [Unknown]
